FAERS Safety Report 20896413 (Version 1)
Quarter: 2022Q2

REPORT INFORMATION
  Report Type: Spontaneous
  Country: US (occurrence: PR)
  Receive Date: 20220531
  Receipt Date: 20220531
  Transmission Date: 20220720
  Serious: Yes (Other)
  Sender: FDA-Public Use
  Company Number: US-BRISTOL-MYERS SQUIBB COMPANY-2022-047110

PATIENT
  Age: 66 Year
  Sex: Male
  Weight: 77.1 kg

DRUGS (6)
  1. ELIQUIS [Suspect]
     Active Substance: APIXABAN
     Indication: Pulmonary embolism
     Dosage: DOSE : 2.5MG TWICE PER DAY;     FREQ : TWICE PER DAY
     Route: 048
     Dates: start: 202102
  2. ELIQUIS [Suspect]
     Active Substance: APIXABAN
     Route: 048
  3. METFORMIN [Concomitant]
     Active Substance: METFORMIN HYDROCHLORIDE
  4. LOTEPREDNOL ETABONATE [Concomitant]
     Active Substance: LOTEPREDNOL ETABONATE
     Dosage: 10-20MG, 1 PER DAY
  5. KLONOPIN [Concomitant]
     Active Substance: CLONAZEPAM
     Dosage: 1.5 (ONE AND A HALF) PER DAY
  6. LIPITOR [Concomitant]
     Active Substance: ATORVASTATIN CALCIUM
     Dosage: 1 AT NIGHT

REACTIONS (1)
  - Antiphospholipid syndrome [Not Recovered/Not Resolved]

NARRATIVE: CASE EVENT DATE: 20211201
